FAERS Safety Report 16104845 (Version 5)
Quarter: 2020Q2

REPORT INFORMATION
  Report Type: Spontaneous
  Country: JP (occurrence: JP)
  Receive Date: 20190322
  Receipt Date: 20200421
  Transmission Date: 20200713
  Serious: Yes (Hospitalization, Disabling, Other)
  Sender: FDA-Public Use
  Company Number: JP-CELGENEUS-JPN-20190306924

PATIENT
  Age: 66 Year
  Sex: Male
  Weight: 45 kg

DRUGS (6)
  1. RINDERON (BETAMETHASONE) [Suspect]
     Active Substance: BETAMETHASONE
     Indication: TUMOUR ASSOCIATED FEVER
     Dosage: 0.5 TO 4 MG PER DAY
     Route: 048
     Dates: start: 20180523, end: 20190218
  2. GANCICLOVIR. [Suspect]
     Active Substance: GANCICLOVIR
     Indication: CYTOMEGALOVIRUS CHORIORETINITIS
     Dosage: UNKNOWN
     Route: 065
     Dates: start: 2019, end: 20190415
  3. DECADRON [Suspect]
     Active Substance: DEXAMETHASONE
     Indication: PRODUCT USED FOR UNKNOWN INDICATION
     Dosage: UNKNOWN
     Route: 065
  4. ISTODAX [Suspect]
     Active Substance: ROMIDEPSIN
     Indication: ANGIOIMMUNOBLASTIC T-CELL LYMPHOMA REFRACTORY
     Dosage: 20 MILLIGRAM
     Route: 041
     Dates: start: 20190122
  5. DEXART [Suspect]
     Active Substance: DEXAMETHASONE SODIUM PHOSPHATE
     Indication: ANTIEMETIC SUPPORTIVE CARE
     Dosage: 9.9 MILLIGRAM
     Route: 041
     Dates: start: 20190122, end: 20190313
  6. VALGANCICLOVIR. [Suspect]
     Active Substance: VALGANCICLOVIR
     Indication: CYTOMEGALOVIRUS CHORIORETINITIS
     Dosage: UNKNOWN
     Route: 065
     Dates: start: 2019, end: 20190415

REACTIONS (4)
  - Cystitis haemorrhagic [Recovered/Resolved]
  - Cytomegalovirus chorioretinitis [Recovered/Resolved with Sequelae]
  - Neutropenia [Recovering/Resolving]
  - Thrombocytopenia [Recovered/Resolved]

NARRATIVE: CASE EVENT DATE: 20190208
